FAERS Safety Report 6878734-9 (Version None)
Quarter: 2010Q3

REPORT INFORMATION
  Report Type: 
  Country: None (occurrence: None)
  Receive Date: 20100728
  Receipt Date: 20100722
  Transmission Date: 20110219
  Serious: Yes (Other)
  Sender: FDA-Public Use
  Company Number: CA-B.I. PHARMACEUTICALS,INC./RIDGEFIELD-2010-CN-00472CN

PATIENT
  Age: 74 Year
  Sex: Female

DRUGS (9)
  1. AGGRENOX [Suspect]
     Dosage: EVERY 1 DAY(S)
     Route: 048
  2. APO-FAMOTIDINE [Concomitant]
     Route: 065
  3. CRESTOR [Concomitant]
     Route: 065
  4. ELTROXIN [Concomitant]
     Route: 065
  5. ENTROPHEN [Concomitant]
     Route: 065
  6. EZETROL [Concomitant]
     Route: 065
  7. LORAZEPAM [Concomitant]
     Route: 065
  8. PMS-CITALOPRAM [Concomitant]
     Route: 065
  9. SANDOZ DILTIAZEM T [Concomitant]
     Route: 065

REACTIONS (2)
  - FAECES DISCOLOURED [None]
  - HAEMATOCHEZIA [None]
